FAERS Safety Report 11569077 (Version 1)
Quarter: 2015Q3

REPORT INFORMATION
  Report Type: Spontaneous
  Country: GB (occurrence: GB)
  Receive Date: 20150929
  Receipt Date: 20150929
  Transmission Date: 20151125
  Serious: Yes (Other)
  Sender: FDA-Public Use
  Company Number: GB-BD RX INC-2015BDR00618

PATIENT

DRUGS (6)
  1. MORPHINE SULFATE. [Suspect]
     Active Substance: MORPHINE SULFATE
     Indication: ACUTE MYOCARDIAL INFARCTION
  2. MORPHINE SULFATE. [Suspect]
     Active Substance: MORPHINE SULFATE
     Indication: PERCUTANEOUS CORONARY INTERVENTION
  3. BIVALIRUDIN. [Concomitant]
     Active Substance: BIVALIRUDIN
     Indication: PERCUTANEOUS CORONARY INTERVENTION
  4. BIVALIRUDIN. [Concomitant]
     Active Substance: BIVALIRUDIN
     Indication: ACUTE MYOCARDIAL INFARCTION
  5. PRASUGREL [Suspect]
     Active Substance: PRASUGREL
     Indication: ACUTE MYOCARDIAL INFARCTION
  6. PRASUGREL [Suspect]
     Active Substance: PRASUGREL
     Indication: PERCUTANEOUS CORONARY INTERVENTION

REACTIONS (3)
  - Drug interaction [Unknown]
  - Platelet aggregation abnormal [Unknown]
  - Vascular stent thrombosis [Unknown]
